FAERS Safety Report 7514054-7 (Version None)
Quarter: 2011Q2

REPORT INFORMATION
  Report Type: 
  Country: None (occurrence: None)
  Receive Date: 20110531
  Receipt Date: 20110524
  Transmission Date: 20111010
  Serious: Yes (Hospitalization, Other)
  Sender: FDA-Public Use
  Company Number: BE-SANOFI-AVENTIS-2011SA020053

PATIENT
  Age: 56 Year
  Sex: Male

DRUGS (10)
  1. VARENICLINE TARTRATE [Concomitant]
     Route: 048
  2. INSULIN GLARGINE [Suspect]
     Route: 058
     Dates: start: 20110201, end: 20110328
  3. TRAZOLAN [Concomitant]
     Indication: ANTIDEPRESSANT THERAPY
     Route: 048
  4. METFORMAX [Concomitant]
     Indication: DIABETES MELLITUS
     Route: 048
  5. APIDRA [Suspect]
     Indication: TYPE 2 DIABETES MELLITUS
     Route: 058
  6. EZETIMIBE [Concomitant]
     Route: 048
  7. IRBESARTAN AND HYDROCHLOROTHIAZIDE [Concomitant]
     Indication: HYPERTENSION
     Route: 048
  8. FORADIL [Concomitant]
     Route: 048
  9. PROPRANOLOL HYDROCHLORIDE [Concomitant]
     Indication: HYPERTENSION
     Route: 048
  10. NEXIUM [Concomitant]
     Route: 048

REACTIONS (4)
  - DYSPNOEA [None]
  - OEDEMA PERIPHERAL [None]
  - PLEURAL EFFUSION [None]
  - PULMONARY OEDEMA [None]
